FAERS Safety Report 10594031 (Version 1)
Quarter: 2014Q4

REPORT INFORMATION
  Report Type: Report from Study
  Country: BR (occurrence: BR)
  Receive Date: 20141119
  Receipt Date: 20141119
  Transmission Date: 20150529
  Serious: Yes (Hospitalization, Other)
  Sender: FDA-Public Use
  Company Number: BR-SA-2014SA156648

PATIENT
  Sex: Female
  Weight: 98 kg

DRUGS (2)
  1. LANTUS [Suspect]
     Active Substance: INSULIN GLARGINE
     Indication: TYPE 2 DIABETES MELLITUS
     Route: 058
     Dates: start: 2008
  2. CLIKSTAR [Concomitant]
     Active Substance: CLIKSTAR
     Indication: DEVICE THERAPY
     Dates: start: 2008

REACTIONS (4)
  - Tremor [Not Recovered/Not Resolved]
  - Lung infection [Recovered/Resolved]
  - Abasia [Not Recovered/Not Resolved]
  - Parkinson^s disease [Not Recovered/Not Resolved]
